FAERS Safety Report 15587071 (Version 1)
Quarter: 2018Q4

REPORT INFORMATION
  Report Type: Spontaneous
  Country: US (occurrence: US)
  Receive Date: 20181105
  Receipt Date: 20181105
  Transmission Date: 20190205
  Serious: No
  Sender: FDA-Public Use
  Company Number: None

PATIENT

DRUGS (1)
  1. HUMIRA [Suspect]
     Active Substance: ADALIMUMAB
     Indication: CROHN^S DISEASE
     Dosage: ?          OTHER STRENGTH:40MG/0.8ML;QUANTITY:1 DF DOSAGE FORM;OTHER FREQUENCY:ONCE WEEKLY;OTHER ROUTE:INJECTION?
     Dates: start: 2015

REACTIONS (1)
  - Dry eye [None]
